FAERS Safety Report 8260671 (Version 4)
Quarter: 2013Q2

REPORT INFORMATION
  Report Type: Spontaneous
  Country: US (occurrence: US)
  Receive Date: 20111123
  Receipt Date: 20130520
  Transmission Date: 20140414
  Serious: Yes (Hospitalization)
  Sender: FDA-Public Use
  Company Number: US-ELI_LILLY_AND_COMPANY-US201111005399

PATIENT
  Age: 76 Year
  Sex: Female
  Weight: 82.99 kg

DRUGS (30)
  1. FORTEO [Suspect]
     Indication: OSTEOPOROSIS
     Dosage: 20 UG, QD
     Route: 058
     Dates: start: 200810, end: 200912
  2. FORTEO [Suspect]
     Dosage: 20 UG, QD
     Route: 058
  3. FORTEO [Suspect]
     Dosage: 20 UG, QD
     Route: 058
  4. CALCIUM [Concomitant]
  5. ADVAIR [Concomitant]
  6. MULTIVITAMIN [Concomitant]
  7. FLONASE [Concomitant]
  8. HYDROCODONE [Concomitant]
  9. LEVOTHYROXIN [Concomitant]
  10. LOVAZA [Concomitant]
  11. MAGNESIUM OXIDE [Concomitant]
  12. PREDNISONE [Concomitant]
  13. SIMVASTATIN [Concomitant]
  14. TRAMADOL [Concomitant]
  15. GENTALYN [Concomitant]
  16. VITAMIN D NOS [Concomitant]
  17. RISPERDAL [Concomitant]
  18. EFFEXOR [Concomitant]
  19. COUMADIN [Concomitant]
  20. FLUDROCORTISON [Concomitant]
  21. AMBIEN [Concomitant]
  22. ATENOLOL [Concomitant]
  23. CALCIUM CITRATE [Concomitant]
  24. CENTRUM SILVER [Concomitant]
  25. ECOTRIN [Concomitant]
  26. MAG OXIDE [Concomitant]
  27. METAXALONE [Concomitant]
  28. MIRALAX [Concomitant]
  29. VENTOLIN                           /00139501/ [Concomitant]
  30. VESICARE [Concomitant]

REACTIONS (5)
  - Spinal fracture [Recovered/Resolved]
  - Spinal fracture [Recovered/Resolved]
  - Malaise [Recovering/Resolving]
  - Gastrointestinal haemorrhage [Unknown]
  - Amnesia [Unknown]
